FAERS Safety Report 8911088 (Version 1)
Quarter: 2012Q4

REPORT INFORMATION
  Report Type: 
  Country: DE (occurrence: DE)
  Receive Date: 20121116
  Receipt Date: 20121116
  Transmission Date: 20130627
  Serious: Yes (Hospitalization)
  Sender: FDA-Public Use
  Company Number: DE-ABBOTT-12P-062-1006657-00

PATIENT
  Age: 49 Year
  Sex: Female

DRUGS (7)
  1. ERGENYL [Suspect]
     Indication: PRODUCT USED FOR UNKNOWN INDICATION
     Dosage: 600 mg daily
     Route: 048
     Dates: start: 201207, end: 20120801
  2. ERGENYL [Suspect]
     Dosage: 450 mg daily
     Route: 048
     Dates: start: 20120802, end: 20120802
  3. ERGENYL [Suspect]
     Dosage: 300 mg daily
     Route: 048
     Dates: start: 20120803, end: 20120805
  4. ERGENYL [Suspect]
     Dosage: 150 mg daily
     Route: 048
     Dates: start: 20120806, end: 20120807
  5. NOVAMINSULFON [Suspect]
     Indication: TOOTHACHE
     Dosage: 4000 mg daily
     Route: 048
     Dates: start: 201207, end: 20120802
  6. TAVOR [Concomitant]
     Indication: PRODUCT USED FOR UNKNOWN INDICATION
     Dates: start: 20120731, end: 20120812
  7. LACTULOSE [Concomitant]
     Indication: PRODUCT USED FOR UNKNOWN INDICATION

REACTIONS (2)
  - Neutropenia [Recovered/Resolved]
  - Leukopenia [Recovered/Resolved]
